FAERS Safety Report 7569810-6 (Version None)
Quarter: 2011Q2

REPORT INFORMATION
  Report Type: 
  Country: None (occurrence: None)
  Receive Date: 20110621
  Receipt Date: 20110621
  Transmission Date: 20111010
  Serious: Yes (Life-Threatening)
  Sender: FDA-Public Use
  Company Number: None

PATIENT
  Age: 75 Year
  Sex: Female
  Weight: 83.0083 kg

DRUGS (2)
  1. PRADAXA [Suspect]
     Indication: ANTICOAGULANT THERAPY
     Dosage: 150 MG 2X DAILY MOUTH
     Route: 048
     Dates: start: 20110311
  2. PRADAXA [Suspect]
     Indication: ATRIAL FIBRILLATION
     Dosage: 150 MG 2X DAILY MOUTH
     Route: 048
     Dates: start: 20110311

REACTIONS (1)
  - DYSPHAGIA [None]
